FAERS Safety Report 11411707 (Version 1)
Quarter: 2015Q3

REPORT INFORMATION
  Report Type: Spontaneous
  Country: US (occurrence: US)
  Receive Date: 20150821
  Receipt Date: 20150821
  Transmission Date: 20151125
  Serious: No
  Sender: FDA-Public Use
  Company Number: US-ELI_LILLY_AND_COMPANY-US201111002918

PATIENT
  Age: 44 Year
  Sex: Male

DRUGS (4)
  1. HUMULIN R [Suspect]
     Active Substance: INSULIN HUMAN
  2. HUMALOG [Concomitant]
     Active Substance: INSULIN LISPRO
     Indication: DIABETES MELLITUS
  3. HUMULIN R [Suspect]
     Active Substance: INSULIN HUMAN
     Indication: DIABETES MELLITUS
     Dosage: 25 U, UNKNOWN
     Route: 065
     Dates: start: 20111104
  4. HUMULIN N [Concomitant]
     Active Substance: INSULIN HUMAN
     Indication: DIABETES MELLITUS
     Dosage: UNK

REACTIONS (5)
  - Product selection error [Recovered/Resolved]
  - Blood glucose decreased [Not Recovered/Not Resolved]
  - Wrong drug administered [Not Recovered/Not Resolved]
  - Tremor [Recovered/Resolved]
  - Gait disturbance [Recovered/Resolved]

NARRATIVE: CASE EVENT DATE: 20111104
